FAERS Safety Report 9400843 (Version 2)
Quarter: 2013Q3

REPORT INFORMATION
  Report Type: Spontaneous
  Country: AU (occurrence: None)
  Receive Date: 20130711
  Receipt Date: 20130717
  Transmission Date: 20140515
  Serious: Yes (Other)
  Sender: FDA-Public Use
  Company Number: ENTC2013-0238

PATIENT
  Age: 61 Year
  Sex: Female

DRUGS (9)
  1. STALEVO [Suspect]
     Dosage: 2 DF DAILY, STRENGTH: 200/50/200 MG
     Dates: start: 20130608, end: 20130610
  2. SIFROL [Concomitant]
  3. NOTEN [Concomitant]
  4. CRESTOR [Concomitant]
  5. ZANIDIP [Concomitant]
  6. TAMBOCOR [Concomitant]
  7. SOMAC [Concomitant]
  8. OROXINE [Concomitant]
  9. WARFARIN [Concomitant]

REACTIONS (7)
  - Suicidal ideation [None]
  - Feeling abnormal [None]
  - Aggression [None]
  - Fatigue [None]
  - Drug intolerance [None]
  - Emotional distress [None]
  - Emotional distress [None]
